FAERS Safety Report 20780222 (Version 1)
Quarter: 2022Q2

REPORT INFORMATION
  Report Type: Report from Study
  Country: US (occurrence: US)
  Receive Date: 20220503
  Receipt Date: 20220503
  Transmission Date: 20220721
  Serious: Yes (Other)
  Sender: FDA-Public Use
  Company Number: US-ABBVIE-22K-163-4377563-00

PATIENT
  Sex: Male

DRUGS (4)
  1. CREON [Suspect]
     Active Substance: PANCRELIPASE AMYLASE\PANCRELIPASE LIPASE\PANCRELIPASE PROTEASE
     Indication: Product used for unknown indication
     Route: 048
  2. COVID-19 VACCINE [Concomitant]
     Indication: COVID-19 immunisation
     Dosage: DOSE 1
     Route: 030
     Dates: start: 20210301, end: 20210301
  3. COVID-19 VACCINE [Concomitant]
     Dosage: DOSE 2
     Route: 030
     Dates: start: 20210401, end: 20210401
  4. COVID-19 VACCINE [Concomitant]
     Dosage: DOSE 3 (BOOSTER VACCINE)
     Route: 030
     Dates: start: 20220420, end: 20220420

REACTIONS (1)
  - Chemotherapy [Unknown]
